FAERS Safety Report 7568077-2 (Version None)
Quarter: 2011Q2

REPORT INFORMATION
  Report Type: 
  Country: None (occurrence: None)
  Receive Date: 20110616
  Receipt Date: 20110606
  Transmission Date: 20111010
  Serious: Yes (Life-Threatening, Hospitalization)
  Sender: FDA-Public Use
  Company Number: IDA-00552

PATIENT
  Age: 72 Year
  Sex: Female

DRUGS (1)
  1. PROPRANOLOL [Suspect]
     Indication: PORTAL HYPERTENSION
     Dosage: 160 MG DAILY ORAL
     Route: 048
     Dates: start: 20110408, end: 20110413

REACTIONS (2)
  - RHYTHM IDIOVENTRICULAR [None]
  - ATRIOVENTRICULAR BLOCK COMPLETE [None]
